FAERS Safety Report 5279960-5 (Version None)
Quarter: 2007Q1

REPORT INFORMATION
  Report Type: 
  Country: None (occurrence: None)
  Receive Date: 20070327
  Receipt Date: 20070327
  Transmission Date: 20070707
  Serious: Yes (Hospitalization)
  Sender: FDA-Public Use
  Company Number: None

PATIENT
  Age: 76 Year
  Sex: Male
  Weight: 56.246 kg

DRUGS (8)
  1. AMPICILLIN/SULBACTAM 1.5 GM [Suspect]
     Indication: PNEUMONIA
     Dosage: 1.5 GM Q6HRS IV
     Route: 042
     Dates: start: 20070223, end: 20070226
  2. MOXIFLOXACIN HCL [Suspect]
     Indication: PNEUMONIA
     Dosage: 400 MG DAILY IV
     Route: 042
     Dates: start: 20070220, end: 20070223
  3. FINASTERIDE [Concomitant]
  4. PREDNISONE [Concomitant]
  5. PRIMIDONE [Concomitant]
  6. RANITIDINE [Concomitant]
  7. FORMOTEROL FUMARATE [Concomitant]
  8. MOMETASONE FUROATE [Concomitant]

REACTIONS (1)
  - CLOSTRIDIUM DIFFICILE COLITIS [None]
